FAERS Safety Report 8616341-8 (Version None)
Quarter: 2012Q3

REPORT INFORMATION
  Report Type: 
  Country: None (occurrence: None)
  Receive Date: 20120823
  Receipt Date: 20120709
  Transmission Date: 20120928
  Serious: No
  Sender: FDA-Public Use
  Company Number: US-MYLANLABS-2012S1014137

PATIENT
  Age: 62 Year
  Sex: Male

DRUGS (1)
  1. VALACYCLOVIR HYDROCHLORIDE [Suspect]
     Route: 048
     Dates: start: 20111228

REACTIONS (1)
  - DYSGEUSIA [None]
